FAERS Safety Report 6317778-2 (Version None)
Quarter: 2009Q3

REPORT INFORMATION
  Report Type: 
  Country: None (occurrence: None)
  Receive Date: 20090821
  Receipt Date: 20090818
  Transmission Date: 20100115
  Serious: Yes (Other)
  Sender: FDA-Public Use
  Company Number: US-ALLERGAN-0909475US

PATIENT
  Age: 47 Year
  Sex: Female

DRUGS (2)
  1. BOTOX COSMETIC [Suspect]
     Indication: SKIN WRINKLING
     Dosage: 28 UNITS, SINGLE
     Route: 030
     Dates: start: 20090627, end: 20090627
  2. ST. JOHN'S WORT [Suspect]

REACTIONS (7)
  - EYE SWELLING [None]
  - EYELID PTOSIS [None]
  - FACIAL PALSY [None]
  - FACIAL PARESIS [None]
  - HAEMATOMA [None]
  - SWELLING FACE [None]
  - WRONG TECHNIQUE IN DRUG USAGE PROCESS [None]
